FAERS Safety Report 7938118-9 (Version None)
Quarter: 2011Q4

REPORT INFORMATION
  Report Type: 
  Country: None (occurrence: None)
  Receive Date: 20111123
  Receipt Date: 20110822
  Transmission Date: 20120403
  Serious: No
  Sender: FDA-Public Use
  Company Number: US-BRISTOL-MYERS SQUIBB COMPANY-15989098

PATIENT
  Age: 65 Year
  Sex: Female
  Weight: 107 kg

DRUGS (2)
  1. ONGLYZA [Suspect]
     Indication: TYPE 2 DIABETES MELLITUS
     Dates: start: 20110713
  2. METFORMIN HCL [Suspect]
     Dosage: 1000 UNITS NOT SPECIFIED

REACTIONS (1)
  - RASH [None]
